FAERS Safety Report 5094824-8 (Version None)
Quarter: 2006Q3

REPORT INFORMATION
  Report Type: 
  Country: None (occurrence: None)
  Receive Date: 20060830
  Receipt Date: 20060830
  Transmission Date: 20061208
  Serious: Yes (Other)
  Sender: FDA-Public Use
  Company Number: None

PATIENT
  Age: 82 Year
  Sex: Male
  Weight: 90.7194 kg

DRUGS (8)
  1. RESTASIS [Suspect]
     Indication: EYE DISORDER
     Dosage: 1 DROP   TWICE DAILY   EACH EYE
     Dates: start: 20051016, end: 20060110
  2. DOXAZOSIN MESYLATE [Concomitant]
  3. SIMVISTATIN [Concomitant]
  4. ALPHAGAN [Concomitant]
  5. NITROGLYCERIN [Concomitant]
  6. COSOPTIC [Concomitant]
  7. METOPROLOL TARTRATE [Concomitant]
  8. TRAVATAN [Concomitant]

REACTIONS (1)
  - RASH [None]
